FAERS Safety Report 16314570 (Version 1)
Quarter: 2019Q2

REPORT INFORMATION
  Report Type: Report from Study
  Country: None (occurrence: US)
  Receive Date: 20190515
  Receipt Date: 20190515
  Transmission Date: 20190711
  Serious: Yes (Other)
  Sender: FDA-Public Use
  Company Number: US-ABBVIE-19P-163-2777190-00

PATIENT
  Age: 46 Year
  Sex: Female

DRUGS (3)
  1. ORILISSA [Suspect]
     Active Substance: ELAGOLIX SODIUM
     Route: 065
  2. ORILISSA [Suspect]
     Active Substance: ELAGOLIX SODIUM
     Indication: ENDOMETRIOSIS
     Route: 065
     Dates: start: 201901, end: 201903
  3. ORILISSA [Suspect]
     Active Substance: ELAGOLIX SODIUM
     Route: 065
     Dates: end: 201903

REACTIONS (4)
  - Ovarian cyst [Unknown]
  - Mood swings [Recovered/Resolved]
  - Product dispensing error [Recovered/Resolved]
  - Depressive symptom [Recovered/Resolved]
